FAERS Safety Report 12258277 (Version 1)
Quarter: 2016Q2

REPORT INFORMATION
  Report Type: Report from Study
  Country: US (occurrence: US)
  Receive Date: 20160412
  Receipt Date: 20160412
  Transmission Date: 20160815
  Serious: Yes (Death, Hospitalization)
  Sender: FDA-Public Use
  Company Number: US-CELGENE-163-21880-12110376

PATIENT
  Age: 81 Year
  Sex: Male
  Weight: 74 kg

DRUGS (5)
  1. MELPHALAN [Suspect]
     Active Substance: MELPHALAN
     Indication: PLASMA CELL MYELOMA
     Route: 048
     Dates: start: 20100125, end: 20110123
  2. REVLIMID [Suspect]
     Active Substance: LENALIDOMIDE
     Indication: PLASMA CELL MYELOMA
     Route: 048
     Dates: start: 20100125
  3. PREDNISONE. [Suspect]
     Active Substance: PREDNISONE
     Indication: PLASMA CELL MYELOMA
     Route: 048
     Dates: start: 20100125, end: 20110123
  4. ASPIRIN. [Concomitant]
     Active Substance: ASPIRIN
     Indication: PRODUCT USED FOR UNKNOWN INDICATION
     Dosage: 100 MILLIGRAM
     Route: 048
     Dates: start: 20100125
  5. REVLIMID [Suspect]
     Active Substance: LENALIDOMIDE
     Dosage: 325 MILLIGRAM
     Route: 048
     Dates: start: 20120927, end: 20121025

REACTIONS (7)
  - Cerebrovascular accident [Unknown]
  - Fatigue [Unknown]
  - Decreased appetite [Unknown]
  - Abdominal infection [Fatal]
  - Pain in extremity [Unknown]
  - Confusional state [Unknown]
  - Muscular weakness [Unknown]

NARRATIVE: CASE EVENT DATE: 20121026
